FAERS Safety Report 4288819-1 (Version None)
Quarter: 2004Q1

REPORT INFORMATION
  Report Type: 
  Country: None (occurrence: None)
  Receive Date: 20040205
  Receipt Date: 20040126
  Transmission Date: 20041129
  Serious: Yes (Death, Other)
  Sender: FDA-Public Use
  Company Number: 2004195924JP

PATIENT
  Age: 76 Year
  Sex: Male

DRUGS (5)
  1. CAMPTOSAR [Suspect]
     Indication: SMALL CELL LUNG CANCER STAGE UNSPECIFIED
     Dosage: 90 MG, CYCLIC, IV DRIP
     Route: 041
     Dates: start: 20030819, end: 20031002
  2. CALSED (AMRUBICIN HYDROCHLORIDE) [Suspect]
     Indication: SMALL CELL LUNG CANCER STAGE UNSPECIFIED
     Dosage: 62 MG, IV
     Route: 042
     Dates: start: 20031204, end: 20031206
  3. CISPLATIN [Concomitant]
  4. VP-16 [Concomitant]
  5. MARUYAMA VACCINE (TUBERCULIN) [Concomitant]

REACTIONS (5)
  - DISEASE PROGRESSION [None]
  - INTERSTITIAL LUNG DISEASE [None]
  - PLEURAL EFFUSION [None]
  - RESPIRATORY FAILURE [None]
  - SMALL CELL LUNG CANCER STAGE UNSPECIFIED [None]
